FAERS Safety Report 25177157 (Version 1)
Quarter: 2025Q2

REPORT INFORMATION
  Report Type: Other
  Country: JP (occurrence: JP)
  Receive Date: 20250409
  Receipt Date: 20250409
  Transmission Date: 20250716
  Serious: Yes (Hospitalization, Other)
  Sender: ANI
  Company Number: JP-ANIPHARMA-022251

PATIENT
  Age: 21 Year
  Sex: Female

DRUGS (9)
  1. ALPRAZOLAM [Suspect]
     Active Substance: ALPRAZOLAM
     Indication: Schizophrenia
  2. RISPERIDONE [Suspect]
     Active Substance: RISPERIDONE
     Indication: Schizophrenia
  3. DEXTROMETHORPHAN [Concomitant]
     Active Substance: DEXTROMETHORPHAN
     Indication: Product used for unknown indication
  4. TRIAZOLAM [Concomitant]
     Active Substance: TRIAZOLAM
     Indication: Schizophrenia
  5. DULOXETINE [Concomitant]
     Active Substance: DULOXETINE
     Indication: Schizophrenia
  6. BROTIZOLAM [Concomitant]
     Active Substance: BROTIZOLAM
     Indication: Schizophrenia
  7. FENTANYL [Concomitant]
     Active Substance: FENTANYL
     Indication: Product used for unknown indication
  8. CHARCOAL ACTIVATED [Concomitant]
     Active Substance: ACTIVATED CHARCOAL
     Indication: Product used for unknown indication
  9. NALOXONE [Concomitant]
     Active Substance: NALOXONE
     Indication: Toxicity to various agents

REACTIONS (16)
  - Generalised tonic-clonic seizure [Recovered/Resolved]
  - Coma [Unknown]
  - Status epilepticus [Recovered/Resolved]
  - Quadriplegia [Unknown]
  - Hyperthermia [Recovered/Resolved]
  - Cranial nerve disorder [Recovered/Resolved]
  - Atelectasis [Unknown]
  - Metabolic acidosis [Recovered/Resolved]
  - Oxygen saturation decreased [Unknown]
  - Drug interaction [Unknown]
  - Mydriasis [Unknown]
  - Hyperhidrosis [Unknown]
  - Flushing [Unknown]
  - Tachycardia [Unknown]
  - Hypotension [Unknown]
  - Intentional overdose [Unknown]
